FAERS Safety Report 6984530-4 (Version None)
Quarter: 2010Q3

REPORT INFORMATION
  Report Type: 
  Country: None (occurrence: None)
  Receive Date: 20100914
  Receipt Date: 20100914
  Transmission Date: 20110219
  Serious: No
  Sender: FDA-Public Use
  Company Number: None

PATIENT
  Age: 61 Year
  Sex: Female
  Weight: 79.3795 kg

DRUGS (12)
  1. CLOZAPINE [Suspect]
     Dosage: 700MG PO
     Route: 048
  2. OMEPRAZOLE [Concomitant]
  3. ASPIRIN [Concomitant]
  4. LEVOTHYROXINE [Concomitant]
  5. MIRALAX [Concomitant]
  6. BENZTROPINE MESYLATE [Concomitant]
  7. DOCUSATE [Concomitant]
  8. NITROFURANTOIN [Concomitant]
  9. SAPHRIS [Concomitant]
  10. MAG OXIDE [Concomitant]
  11. ARTANE [Concomitant]
  12. DEPAKOTE [Concomitant]

REACTIONS (2)
  - FALL [None]
  - TREMOR [None]
